FAERS Safety Report 24058229 (Version 1)
Quarter: 2024Q3

REPORT INFORMATION
  Report Type: Report from Study
  Country: UY (occurrence: UY)
  Receive Date: 20240708
  Receipt Date: 20240708
  Transmission Date: 20241016
  Serious: Yes (Other)
  Sender: ABBVIE
  Company Number: UY-ABBVIE-5830414

PATIENT
  Age: 46 Year
  Sex: Female
  Weight: 80 kg

DRUGS (17)
  1. UPADACITINIB [Suspect]
     Active Substance: UPADACITINIB
     Indication: Rheumatoid arthritis
     Dosage: 15 MILLIGRAM
     Route: 048
     Dates: start: 20210107, end: 20220119
  2. UPADACITINIB [Suspect]
     Active Substance: UPADACITINIB
     Indication: Rheumatoid arthritis
     Dosage: 15 MILLIGRAM
     Route: 048
     Dates: start: 20220204
  3. ISONIAZID [Concomitant]
     Active Substance: ISONIAZID
     Indication: Latent tuberculosis
     Dosage: DAILY
     Route: 048
     Dates: start: 20201030, end: 20210310
  4. CLARITHROMYCIN [Concomitant]
     Active Substance: CLARITHROMYCIN
     Indication: Bronchitis
     Dosage: DAILY
     Route: 048
     Dates: start: 20210910, end: 20210920
  5. ENALAPRIL [Concomitant]
     Active Substance: ENALAPRIL
     Indication: Hypertension
     Dosage: DAILY
     Route: 048
     Dates: start: 20230417
  6. METHOTREXATE [Concomitant]
     Active Substance: METHOTREXATE
     Indication: Product used for unknown indication
     Dosage: WEEKLY
     Route: 048
     Dates: start: 20210217, end: 20220119
  7. METHOTREXATE [Concomitant]
     Active Substance: METHOTREXATE
     Indication: Product used for unknown indication
     Dosage: WEEKLY?22.5 MG
     Route: 048
     Dates: start: 20200410, end: 20210210
  8. METHOTREXATE [Concomitant]
     Active Substance: METHOTREXATE
     Indication: Product used for unknown indication
     Route: 048
     Dates: start: 20220204
  9. ORPHENADRINE [Concomitant]
     Active Substance: ORPHENADRINE
     Indication: Headache
     Dosage: TWICE DAILY
     Route: 048
     Dates: start: 20230406, end: 20230407
  10. ACETAMINOPHEN [Concomitant]
     Active Substance: ACETAMINOPHEN
     Indication: COVID-19
     Dosage: 3 TIMES DAILY
     Route: 048
     Dates: start: 20220119, end: 20220624
  11. ATORVASTATIN [Concomitant]
     Active Substance: ATORVASTATIN
     Indication: Dyslipidaemia
     Dosage: DAILY
     Route: 048
     Dates: start: 20210720
  12. DICLOFENAC [Concomitant]
     Active Substance: DICLOFENAC
     Indication: Headache
     Dosage: TWICE DAILY
     Route: 048
     Dates: start: 20230406, end: 20230407
  13. FOLIC ACID [Concomitant]
     Active Substance: FOLIC ACID
     Indication: Product used for unknown indication
     Dosage: WEEKLY
     Route: 048
     Dates: start: 20200410
  14. SARS-CoV-2 vaccine [Concomitant]
     Indication: COVID-19 immunisation
     Dates: start: 20210910
  15. SARS-CoV-2 vaccine [Concomitant]
     Indication: COVID-19 immunisation
     Dates: start: 20210521
  16. SARS-CoV-2 vaccine [Concomitant]
     Indication: COVID-19 immunisation
     Dates: start: 20211008
  17. SARS-CoV-2 vaccine [Concomitant]
     Indication: COVID-19 immunisation
     Dates: start: 20210618

REACTIONS (6)
  - Genital haemorrhage [Recovered/Resolved]
  - Rhinitis [Recovered/Resolved]
  - Nasopharyngitis [Recovered/Resolved]
  - Glossodynia [Not Recovered/Not Resolved]
  - Vertigo [Recovered/Resolved]
  - Back pain [Recovered/Resolved]

NARRATIVE: CASE EVENT DATE: 20210826
